FAERS Safety Report 14783415 (Version 3)
Quarter: 2018Q2

REPORT INFORMATION
  Report Type: Spontaneous
  Country: JP (occurrence: JP)
  Receive Date: 20180420
  Receipt Date: 20180524
  Transmission Date: 20180711
  Serious: Yes (Hospitalization)
  Sender: FDA-Public Use
  Company Number: JP-NAPPMUNDI-GBR-2018-0055128

PATIENT
  Age: 56 Year
  Sex: Female

DRUGS (7)
  1. WARFARIN POTASSIUM [Concomitant]
     Active Substance: WARFARIN POTASSIUM
     Indication: PULMONARY EMBOLISM
     Dosage: 1 MG, DAILY
  2. MS CONTIN [Suspect]
     Active Substance: MORPHINE SULFATE
     Indication: BREAST CANCER
     Dosage: 40 MG, BID
     Route: 048
  3. RIVOTRIL [Concomitant]
     Active Substance: CLONAZEPAM
     Indication: BREAST CANCER
     Dosage: 0.25 MG, DAILY
  4. LOXONIN [Concomitant]
     Active Substance: LOXOPROFEN SODIUM
     Indication: BREAST CANCER
     Dosage: 180 MG, DAILY
     Route: 048
  5. OLANZAPINE. [Concomitant]
     Active Substance: OLANZAPINE
     Indication: BREAST CANCER
     Dosage: 2.5 MG, DAILY
     Route: 048
  6. CALONAL [Concomitant]
     Active Substance: ACETAMINOPHEN
     Indication: BREAST CANCER
     Dosage: 2400 MG, DAILY
     Route: 048
  7. LEXAPRO [Concomitant]
     Active Substance: ESCITALOPRAM OXALATE
     Indication: DEPRESSION
     Dosage: 5 MG, DAILY
     Route: 048

REACTIONS (6)
  - Constipation [Unknown]
  - Abdominal pain lower [Unknown]
  - Vomiting [Unknown]
  - Nausea [Unknown]
  - Dehydration [Recovering/Resolving]
  - Diarrhoea [Recovering/Resolving]

NARRATIVE: CASE EVENT DATE: 20180315
